FAERS Safety Report 9348121 (Version 1)
Quarter: 2013Q2

REPORT INFORMATION
  Report Type: Spontaneous
  Country: US (occurrence: US)
  Receive Date: 20130614
  Receipt Date: 20130614
  Transmission Date: 20140414
  Serious: Yes (Death)
  Sender: FDA-Public Use
  Company Number: US-COVIDIEN/TYCO HEALTHCARE/MALLINCKRODT-T201302784

PATIENT
  Sex: Female

DRUGS (1)
  1. GABLOFEN [Suspect]
     Dosage: 289 MCG/DAY
     Route: 037

REACTIONS (1)
  - Bile duct stenosis [Fatal]
